FAERS Safety Report 4470438-5 (Version None)
Quarter: 2004Q3

REPORT INFORMATION
  Report Type: 
  Country: None (occurrence: None)
  Receive Date: 20040909
  Receipt Date: 20040806
  Transmission Date: 20050211
  Serious: Yes (Life-Threatening)
  Sender: FDA-Public Use
  Company Number: US-JNJFOC-20040802426

PATIENT
  Age: 99 Year
  Sex: Female

DRUGS (7)
  1. NATRECOR [Suspect]
     Indication: CARDIAC FAILURE CONGESTIVE
     Dosage: 0.015 UG/KG/MIN, 2 IN 1 WEEK, INTRVENOUS
     Route: 042
     Dates: start: 20040701
  2. NTG (GLYCERRYL TRINITRATE) [Concomitant]
  3. ASA (ACETYSALICYLIC ACID) [Concomitant]
  4. SYNTHROID [Concomitant]
  5. PROTONIX (PANTROPRAZOLE) [Concomitant]
  6. FLONASE (FLUTICASONE PROPINATE) [Concomitant]
  7. LASIX [Concomitant]

REACTIONS (8)
  - CHILLS [None]
  - HEART RATE IRREGULAR [None]
  - HYPOGLYCAEMIA [None]
  - HYPOTENSION [None]
  - OXYGEN SATURATION DECREASED [None]
  - PYREXIA [None]
  - URINARY TRACT INFECTION [None]
  - VOMITING [None]
